FAERS Safety Report 25185647 (Version 1)
Quarter: 2025Q2

REPORT INFORMATION
  Report Type: Spontaneous
  Country: FR (occurrence: FR)
  Receive Date: 20250410
  Receipt Date: 20250410
  Transmission Date: 20250716
  Serious: Yes (Hospitalization)
  Sender: MYLAN
  Company Number: None

PATIENT
  Age: 49 Year
  Sex: Male
  Weight: 91 kg

DRUGS (8)
  1. VALPROATE SODIUM [Interacting]
     Active Substance: VALPROATE SODIUM
     Indication: Psychotic disorder
     Dosage: 2 DOSAGE FORM, QD
     Dates: start: 20240606, end: 20250322
  2. MORPHINE SULFATE [Interacting]
     Active Substance: MORPHINE SULFATE
     Indication: Pain
     Dosage: 50 MILLIGRAM, Q4H, 50 MG EVERY 4 HOURS IN SB
     Dates: start: 20250228, end: 20250322
  3. SKENAN [Interacting]
     Active Substance: MORPHINE SULFATE
     Indication: Pain
     Dosage: 2 DOSAGE FORM, QD, PROLONGED-RELEASE MICROGRANULES IN CAPSULE
     Dates: start: 20250228, end: 20250322
  4. CYAMEMAZINE [Interacting]
     Active Substance: CYAMEMAZINE
     Indication: Psychotic disorder
     Dates: start: 20240819, end: 20250322
  5. PALIPERIDONE PALMITATE [Interacting]
     Active Substance: PALIPERIDONE PALMITATE
     Indication: Psychotic disorder
     Dosage: 1 DOSAGE FORM, 28D CYCLE
     Dates: start: 20241202, end: 20250322
  6. BROMAZEPAM [Interacting]
     Active Substance: BROMAZEPAM
     Indication: Psychotic disorder
     Dates: start: 20240606, end: 20250322
  7. LORMETAZEPAM [Interacting]
     Active Substance: LORMETAZEPAM
     Indication: Psychotic disorder
     Dates: start: 20240610, end: 20250322
  8. TRIMEPRAZINE [Interacting]
     Active Substance: TRIMEPRAZINE
     Indication: Psychotic disorder
     Dosage: 4 DOSAGE FORM, QD
     Dates: start: 20240910, end: 20250322

REACTIONS (2)
  - Intestinal obstruction [Recovering/Resolving]
  - Drug interaction [Unknown]

NARRATIVE: CASE EVENT DATE: 20250322
